FAERS Safety Report 21447008 (Version 1)
Quarter: 2022Q4

REPORT INFORMATION
  Report Type: Spontaneous
  Country: US (occurrence: None)
  Receive Date: 20221011
  Receipt Date: 20221011
  Transmission Date: 20230113
  Serious: No
  Sender: FDA-Public Use
  Company Number: None

PATIENT
  Age: 52 Year
  Sex: Female

DRUGS (1)
  1. COPAXONE [Suspect]
     Active Substance: GLATIRAMER ACETATE
     Dosage: FREQUENCY : DAILY;?
     Route: 058

REACTIONS (7)
  - Dyspnoea [None]
  - Erythema [None]
  - Headache [None]
  - Palpitations [None]
  - Peripheral coldness [None]
  - Defaecation urgency [None]
  - Myalgia [None]

NARRATIVE: CASE EVENT DATE: 20220927
